FAERS Safety Report 14412336 (Version 1)
Quarter: 2018Q1

REPORT INFORMATION
  Report Type: Spontaneous
  Country: US (occurrence: US)
  Receive Date: 20180118
  Receipt Date: 20180118
  Transmission Date: 20180509
  Serious: Yes (Disabling, Other)
  Sender: FDA-Public Use
  Company Number: None

PATIENT
  Age: 58 Year
  Sex: Female
  Weight: 54 kg

DRUGS (5)
  1. GADOVIST [Suspect]
     Active Substance: GADOBUTROL
     Indication: NUCLEAR MAGNETIC RESONANCE IMAGING
     Dosage: ?          QUANTITY:15 CC;OTHER FREQUENCY:1 TIME;?
     Route: 042
     Dates: start: 20170519
  2. TRAMADOL. [Concomitant]
     Active Substance: TRAMADOL
  3. VITAMIN D [Concomitant]
     Active Substance: CHOLECALCIFEROL
  4. GADAVIST [Suspect]
     Active Substance: GADOBUTROL
     Indication: NUCLEAR MAGNETIC RESONANCE IMAGING
     Dates: start: 20170519, end: 20170519
  5. TURMERIC [Concomitant]
     Active Substance: HERBALS\TURMERIC

REACTIONS (10)
  - Blood pressure increased [None]
  - Burning sensation [None]
  - Balance disorder [None]
  - Flushing [None]
  - Drug level increased [None]
  - Contrast media deposition [None]
  - Anxiety [None]
  - Feeling hot [None]
  - Tremor [None]
  - Headache [None]

NARRATIVE: CASE EVENT DATE: 20170519
